FAERS Safety Report 9493293 (Version 2)
Quarter: 2013Q3

REPORT INFORMATION
  Report Type: Report from Study
  Country: IN (occurrence: IN)
  Receive Date: 20130902
  Receipt Date: 20130902
  Transmission Date: 20140515
  Serious: Yes (Hospitalization)
  Sender: FDA-Public Use
  Company Number: PHHO2011IN14640

PATIENT
  Age: 75 Year
  Sex: Male
  Weight: 71 kg

DRUGS (8)
  1. ALISKIREN [Suspect]
     Indication: CARDIOVASCULAR DISORDER
     Route: 048
     Dates: start: 20080325
  2. ECOSPRIN [Concomitant]
     Dosage: 325 MG, QD
  3. CLOMIN [Concomitant]
     Dosage: 75 MG, QD
  4. ATENOR [Concomitant]
     Dosage: 40 MG, QD
  5. ZYDONE [Concomitant]
     Dosage: 100 MG, QD
  6. LASIX [Concomitant]
     Dosage: 40 MG, 1 - 1/2
  7. ATORVASTATIN [Concomitant]
  8. NICORANDIL [Concomitant]

REACTIONS (4)
  - Renal failure chronic [Recovering/Resolving]
  - Concomitant disease progression [Recovering/Resolving]
  - Acute coronary syndrome [Recovering/Resolving]
  - Coronary artery disease [Recovering/Resolving]
